FAERS Safety Report 4703241-9 (Version None)
Quarter: 2005Q2

REPORT INFORMATION
  Report Type: 
  Country: None (occurrence: None)
  Receive Date: 20050629
  Receipt Date: 20050622
  Transmission Date: 20051028
  Serious: Yes (Hospitalization)
  Sender: FDA-Public Use
  Company Number: 200515893GDDC

PATIENT
  Age: 87 Year
  Sex: Male

DRUGS (1)
  1. LANTUS [Suspect]
     Dosage: DOSE: 10-14; DOSE UNIT: UNITS
     Route: 058

REACTIONS (3)
  - BLOOD GLUCOSE INCREASED [None]
  - BLOOD URINE PRESENT [None]
  - HYPERGLYCAEMIA [None]
